FAERS Safety Report 4486627-X (Version None)
Quarter: 2004Q4

REPORT INFORMATION
  Report Type: 
  Country: None (occurrence: None)
  Receive Date: 20041027
  Receipt Date: 20041021
  Transmission Date: 20050328
  Serious: Yes (Hospitalization)
  Sender: FDA-Public Use
  Company Number: PHRM2004FR03144

PATIENT
  Age: 83 Year
  Sex: Male

DRUGS (3)
  1. COTAREG [Suspect]
     Indication: ESSENTIAL HYPERTENSION
     Route: 048
     Dates: end: 20040713
  2. COLCHIMAX [Concomitant]
     Route: 048
  3. TRIATEC [Concomitant]
     Route: 048
     Dates: start: 20020101, end: 20040801

REACTIONS (3)
  - DERMATITIS CONTACT [None]
  - ECZEMA [None]
  - TOXIC SKIN ERUPTION [None]
